FAERS Safety Report 13445248 (Version 1)
Quarter: 2017Q2

REPORT INFORMATION
  Report Type: Spontaneous
  Country: FR (occurrence: FR)
  Receive Date: 20170414
  Receipt Date: 20170414
  Transmission Date: 20170830
  Serious: Yes (Hospitalization, Other)
  Sender: FDA-Public Use
  Company Number: FR-BRISTOL-MYERS SQUIBB COMPANY-BMS-2017-030761

PATIENT
  Age: 72 Year
  Sex: Male

DRUGS (1)
  1. OPDIVO [Suspect]
     Active Substance: NIVOLUMAB
     Indication: SMALL CELL LUNG CANCER
     Dosage: 190 MG, Q2WK
     Route: 042
     Dates: start: 20161221, end: 20170118

REACTIONS (6)
  - Muscular weakness [Recovering/Resolving]
  - Necrotising myositis [Recovering/Resolving]
  - Product use in unapproved indication [Unknown]
  - Cataract [Unknown]
  - Rhabdomyolysis [Unknown]
  - Hypoacusis [Unknown]

NARRATIVE: CASE EVENT DATE: 20170121
